FAERS Safety Report 10313762 (Version 2)
Quarter: 2014Q3

REPORT INFORMATION
  Report Type: Spontaneous
  Country: US (occurrence: US)
  Receive Date: 20140718
  Receipt Date: 20140718
  Transmission Date: 20150326
  Serious: Yes (Hospitalization, Other)
  Sender: FDA-Public Use
  Company Number: US-009507513-2010SP053024

PATIENT
  Sex: Female
  Weight: 99.34 kg

DRUGS (3)
  1. DIOVAN [Suspect]
     Active Substance: VALSARTAN
     Dosage: 80 MG, QD
     Dates: start: 20060824
  2. NUVARING [Suspect]
     Active Substance: ETHINYL ESTRADIOL\ETONOGESTREL
     Indication: CONTRACEPTION
     Route: 067
     Dates: start: 2004, end: 20071001
  3. DIOVAN [Suspect]
     Active Substance: VALSARTAN
     Indication: HYPERTENSION
     Dosage: 160 MG, QD
     Dates: end: 20060823

REACTIONS (23)
  - Asthma [Unknown]
  - Stress [Unknown]
  - Dyspnoea exertional [Unknown]
  - Fatigue [Unknown]
  - Heart rate irregular [Unknown]
  - Supraventricular tachycardia [Recovered/Resolved]
  - Pulmonary embolism [Not Recovered/Not Resolved]
  - Abortion incomplete [Recovered/Resolved]
  - Insomnia [Unknown]
  - Hypertensive heart disease [Unknown]
  - Gout [Unknown]
  - Myocardial infarction [Unknown]
  - Sleep apnoea syndrome [Unknown]
  - Haemorrhagic ovarian cyst [Unknown]
  - Hypotension [Unknown]
  - Haemorrhagic disorder [Unknown]
  - Migraine [Unknown]
  - Unintended pregnancy [Recovered/Resolved]
  - Autoimmune disorder [Unknown]
  - Trigeminal neuralgia [Unknown]
  - Chest pain [Unknown]
  - Deep vein thrombosis [Unknown]
  - Hypertension [Unknown]

NARRATIVE: CASE EVENT DATE: 2004
